FAERS Safety Report 23056647 (Version 1)
Quarter: 2023Q4

REPORT INFORMATION
  Report Type: Spontaneous
  Country: IT (occurrence: IT)
  Receive Date: 20231011
  Receipt Date: 20231011
  Transmission Date: 20240109
  Serious: Yes (Hospitalization, Other)
  Sender: FDA-Public Use
  Company Number: None

PATIENT
  Age: 58 Year
  Sex: Female

DRUGS (3)
  1. IFOSFAMIDE [Suspect]
     Active Substance: IFOSFAMIDE
     Indication: Osteosarcoma metastatic
     Dosage: HOLOXAN IV 1 VIAL 1G 5000 MG FROM 15-09-2023 TO 17-09-2023, DOSAGE FORM POWDER FOR SOLUTION FOR INFU
     Route: 042
     Dates: start: 20230915, end: 20230917
  2. EPIRUBICIN HYDROCHLORIDE [Concomitant]
     Active Substance: EPIRUBICIN HYDROCHLORIDE
     Indication: Osteosarcoma metastatic
     Dosage: 50 MG
     Route: 042
     Dates: start: 20230915, end: 20230917
  3. MESNA [Concomitant]
     Active Substance: MESNA
     Indication: Drug detoxification
     Dosage: UNK
     Route: 065

REACTIONS (6)
  - Acute kidney injury [Not Recovered/Not Resolved]
  - Acute hepatic failure [Not Recovered/Not Resolved]
  - Asthenia [Not Recovered/Not Resolved]
  - Febrile neutropenia [Not Recovered/Not Resolved]
  - Metabolic acidosis [Not Recovered/Not Resolved]
  - Pancytopenia [Not Recovered/Not Resolved]

NARRATIVE: CASE EVENT DATE: 20230924
